FAERS Safety Report 9729267 (Version 1)
Quarter: 2013Q4

REPORT INFORMATION
  Report Type: Spontaneous
  Country: US (occurrence: US)
  Receive Date: 20131204
  Receipt Date: 20131204
  Transmission Date: 20140711
  Serious: Yes (Hospitalization)
  Sender: FDA-Public Use
  Company Number: US-BAYER-2013-147399

PATIENT
  Age: 41 Year
  Sex: Female

DRUGS (6)
  1. YASMIN [Suspect]
     Dosage: UNK
  2. SYNTHROID [Concomitant]
     Dosage: 125 MCG, UNK
  3. LEXAPRO [Concomitant]
     Dosage: 20 MG, UNK
  4. FLONASE [Concomitant]
     Dosage: 50 MCG, UNK
  5. HYOSCYAMINE [Concomitant]
     Dosage: 0.125 MG, UNK
  6. NSAID^S [Concomitant]
     Dosage: UNK

REACTIONS (1)
  - Pulmonary embolism [None]
